FAERS Safety Report 7726074-8 (Version None)
Quarter: 2011Q3

REPORT INFORMATION
  Report Type: 
  Country: None (occurrence: None)
  Receive Date: 20110902
  Receipt Date: 20110829
  Transmission Date: 20111222
  Serious: Yes (Life-Threatening, Hospitalization)
  Sender: FDA-Public Use
  Company Number: US-ALLERGAN-1108464US

PATIENT
  Age: 46 Year
  Sex: Female
  Weight: 77.098 kg

DRUGS (14)
  1. PRILOSEC [Concomitant]
     Dosage: 20 MG, QD
     Route: 048
  2. EMELDAMAX [Concomitant]
     Indication: MIGRAINE
     Dosage: UNK
     Route: 060
  3. IMITREX [Concomitant]
     Dosage: 1 DF, PRN
     Route: 048
  4. VALIUM [Concomitant]
     Dosage: 5 MG, QHS
     Route: 048
  5. SOMA [Concomitant]
     Dosage: 350 MG, TID
     Route: 048
  6. OXYCODONE HCL [Concomitant]
     Dosage: 30 MG, TID
     Route: 048
  7. SAVELLA [Concomitant]
     Dosage: 50 MG, BID
     Route: 048
  8. BOTULINUM TOXIN TYPE A [Suspect]
     Indication: TORTICOLLIS
     Dosage: 300 UNITS, SINGLE
     Route: 030
     Dates: start: 20110620, end: 20110620
  9. BOTULINUM TOXIN TYPE A [Suspect]
     Dosage: 200 UNK, UNK
     Dates: start: 20110125, end: 20110125
  10. TOPAMAX [Concomitant]
     Dosage: 50 MG, UNK
     Route: 048
  11. ETODOLAC [Concomitant]
     Dosage: 400 MG, UNK
     Route: 048
  12. LIDODERM [Concomitant]
     Dosage: 1 UNK, UNK
     Route: 062
  13. SUCRALFATE [Concomitant]
     Dosage: 1 G, UNK
     Route: 048
  14. LACTULOSE [Concomitant]
     Dosage: 1 G, TID
     Route: 048

REACTIONS (6)
  - CHEST DISCOMFORT [None]
  - NECK PAIN [None]
  - PNEUMOTHORAX TRAUMATIC [None]
  - PNEUMOTHORAX [None]
  - MUSCULOSKELETAL PAIN [None]
  - DYSPNOEA [None]
